FAERS Safety Report 5029069-0 (Version None)
Quarter: 2006Q2

REPORT INFORMATION
  Report Type: 
  Country: None (occurrence: None)
  Receive Date: 20060613
  Receipt Date: 20060601
  Transmission Date: 20061013
  Serious: Yes (Other)
  Sender: FDA-Public Use
  Company Number: VNL_0150_2006

PATIENT
  Sex: Male

DRUGS (1)
  1. APO-GO [Suspect]
     Dosage: DF SC
     Route: 058

REACTIONS (1)
  - SLEEP ATTACKS [None]
